FAERS Safety Report 7231526-3 (Version None)
Quarter: 2011Q1

REPORT INFORMATION
  Report Type: 
  Country: None (occurrence: None)
  Receive Date: 20110107
  Receipt Date: 20100120
  Transmission Date: 20110831
  Serious: Yes (Other)
  Sender: FDA-Public Use
  Company Number: AMI0017491

PATIENT
  Age: 77 Year
  Sex: Female

DRUGS (5)
  1. TIMOPTIC-XE [Suspect]
     Indication: GLAUCOMA
     Dosage: 1 DROP QD -046
     Dates: start: 20091101
  2. PREDNEFRIN [Concomitant]
  3. VOLTAREN [Concomitant]
  4. TRAVATAN [Concomitant]
  5. ALPHAGAN [Concomitant]

REACTIONS (2)
  - PALPITATIONS [None]
  - CARDIAC FIBRILLATION [None]
